FAERS Safety Report 4880549-8 (Version None)
Quarter: 2005Q4

REPORT INFORMATION
  Report Type: 
  Country: None (occurrence: None)
  Receive Date: 20051223
  Receipt Date: 20051116
  Transmission Date: 20060501
  Serious: No
  Sender: FDA-Public Use
  Company Number: 05P-163-0317420-00

PATIENT
  Age: 63 Year
  Sex: Female
  Weight: 98 kg

DRUGS (12)
  1. HUMIRA [Suspect]
     Indication: RHEUMATOID ARTHRITIS
     Dosage: 40 MG, 1 IN 2 WK, SUBCUTANEOUS
     Route: 058
     Dates: start: 20050801, end: 20050927
  2. HUMIRA [Suspect]
     Indication: RHEUMATOID ARTHRITIS
     Dosage: 40 MG, 1 IN 2 WK, SUBCUTANEOUS
     Route: 058
     Dates: start: 20051115
  3. PIOGLITAZONE HCL [Concomitant]
  4. ATORVASTATIN CALCIUM [Concomitant]
  5. METHOTREXATE [Concomitant]
  6. COLCHICINE [Concomitant]
  7. FUROSEMIDE [Concomitant]
  8. POTASSIUM [Concomitant]
  9. ASPIRIN [Concomitant]
  10. FOLIC ACID [Concomitant]
  11. FAMOTIDINE [Concomitant]
  12. HYDROCODONE BITARTRATE [Concomitant]

REACTIONS (2)
  - ASTHENIA [None]
  - PAIN [None]
